FAERS Safety Report 15900047 (Version 2)
Quarter: 2019Q2

REPORT INFORMATION
  Report Type: Spontaneous
  Country: JP (occurrence: JP)
  Receive Date: 20190201
  Receipt Date: 20190430
  Transmission Date: 20190711
  Serious: Yes (Hospitalization, Other)
  Sender: FDA-Public Use
  Company Number: JP-SUNOVION-2019SUN000331

PATIENT
  Age: 30 Year
  Sex: Male

DRUGS (2)
  1. LUNESTA [Suspect]
     Active Substance: ESZOPICLONE
     Dosage: 15 DF, 2MG TABLETS
     Route: 048
  2. LEXAPRO [Suspect]
     Active Substance: ESCITALOPRAM OXALATE
     Dosage: 15 DF, QD
     Route: 048

REACTIONS (5)
  - Tonic convulsion [Recovered/Resolved]
  - Overdose [Unknown]
  - Glossoptosis [Recovered/Resolved]
  - Altered state of consciousness [Recovered/Resolved]
  - Serotonin syndrome [Recovered/Resolved]
